FAERS Safety Report 8573068 (Version 4)
Quarter: 2012Q4

REPORT INFORMATION
  Report Type: 
  Country: ZA (occurrence: ZA)
  Receive Date: 20120522
  Receipt Date: 20121218
  Transmission Date: 20130627
  Serious: Yes (Hospitalization, Other)
  Sender: FDA-Public Use
  Company Number: ZA-JNJFOC-20120511817

PATIENT
  Age: 13 Year
  Sex: Male
  Weight: 38 kg

DRUGS (9)
  1. REVELLEX [Suspect]
     Indication: COLITIS ULCERATIVE
     Route: 042
     Dates: start: 20120426
  2. REVELLEX [Suspect]
     Indication: COLITIS ULCERATIVE
     Route: 042
     Dates: start: 20120514
  3. PHENERGAN [Concomitant]
     Indication: PREMEDICATION
     Route: 065
  4. AZAPRESS [Concomitant]
     Indication: COLITIS ULCERATIVE
     Route: 065
     Dates: start: 20120114
  5. PREDNISONE [Concomitant]
     Indication: COLITIS ULCERATIVE
     Route: 065
     Dates: start: 20100902
  6. ASACOL [Concomitant]
     Indication: CROHN^S DISEASE
     Route: 065
  7. URSOTAN [Concomitant]
     Indication: CHOLANGITIS SCLEROSING
     Route: 065
     Dates: start: 20101004
  8. ARAVA [Concomitant]
     Indication: ARTHRITIS
     Route: 065
     Dates: start: 20110202, end: 20120219
  9. TEXA [Concomitant]
     Dosage: for 7days
     Route: 065

REACTIONS (2)
  - Incorrect storage of drug [Unknown]
  - Urticaria [Recovered/Resolved]
